FAERS Safety Report 19741001 (Version 3)
Quarter: 2021Q4

REPORT INFORMATION
  Report Type: Report from Study
  Country: CA (occurrence: None)
  Receive Date: 20210824
  Receipt Date: 20211111
  Transmission Date: 20220303
  Serious: Yes (Death)
  Sender: FDA-Public Use
  Company Number: CA-MERCK HEALTHCARE KGAA-9259268

PATIENT
  Age: 54 Year
  Sex: Female

DRUGS (1)
  1. MAVENCLAD [Suspect]
     Active Substance: CLADRIBINE
     Indication: Multiple sclerosis
     Route: 048
     Dates: start: 20210125

REACTIONS (1)
  - Death [Fatal]

NARRATIVE: CASE EVENT DATE: 20210621
